FAERS Safety Report 5406072-X (Version None)
Quarter: 2007Q3

REPORT INFORMATION
  Report Type: 
  Country: None (occurrence: None)
  Receive Date: 20070806
  Receipt Date: 20070727
  Transmission Date: 20080115
  Serious: Yes (Hospitalization)
  Sender: FDA-Public Use
  Company Number: B0482146A

PATIENT
  Age: 51 Year
  Sex: Female

DRUGS (8)
  1. ZYBAN [Suspect]
     Indication: DEPRESSION
     Dosage: 150MG SEE DOSAGE TEXT
     Route: 048
     Dates: start: 20070606, end: 20070718
  2. AZILECT [Suspect]
     Dosage: 1MG PER DAY
     Route: 048
     Dates: start: 20070514
  3. OMEPRAZOLE [Concomitant]
     Dosage: 20MG PER DAY
     Route: 048
     Dates: start: 20070411
  4. RIGEVIDON [Concomitant]
     Route: 048
  5. ACTONEL [Concomitant]
     Dosage: 35MG WEEKLY
     Route: 048
  6. CALCICHEW D3 [Concomitant]
     Dosage: 1TAB PER DAY
     Route: 048
  7. MELOXICAM [Concomitant]
     Dosage: 7.5MG TWICE PER DAY
     Route: 048
  8. SIFROL [Concomitant]
     Dosage: 1MG THREE TIMES PER DAY
     Route: 048

REACTIONS (2)
  - CONVULSION [None]
  - DRUG INTERACTION [None]
